FAERS Safety Report 23139786 (Version 3)
Quarter: 2024Q1

REPORT INFORMATION
  Report Type: Other
  Country: US (occurrence: None)
  Receive Date: 20231102
  Receipt Date: 20240311
  Transmission Date: 20240410
  Serious: Yes (Death, Other)
  Sender: FDA-Public Use
  Company Number: US-ROCHE-3448590

PATIENT

DRUGS (12)
  1. PEMBROLIZUMAB [Suspect]
     Active Substance: PEMBROLIZUMAB
     Indication: Adenocarcinoma gastric
     Route: 042
  2. PEMBROLIZUMAB [Suspect]
     Active Substance: PEMBROLIZUMAB
     Indication: Gastrooesophageal cancer
  3. TRASTUZUMAB [Suspect]
     Active Substance: TRASTUZUMAB
     Indication: Adenocarcinoma gastric
     Dosage: FOLLOWING AN INITIAL LOADING DOSE OF 8 MG/KG
     Route: 041
  4. TRASTUZUMAB [Suspect]
     Active Substance: TRASTUZUMAB
     Indication: Gastrooesophageal cancer
  5. CAPECITABINE [Suspect]
     Active Substance: CAPECITABINE
     Indication: Adenocarcinoma gastric
     Dosage: ON DAYS 1-14 OF EACH 3-WEEK CYCLE
     Route: 048
  6. CAPECITABINE [Suspect]
     Active Substance: CAPECITABINE
     Indication: Gastrooesophageal cancer
  7. OXALIPLATIN [Suspect]
     Active Substance: OXALIPLATIN
     Indication: Adenocarcinoma gastric
     Route: 042
  8. OXALIPLATIN [Suspect]
     Active Substance: OXALIPLATIN
     Indication: Gastrooesophageal cancer
  9. FLUOROURACIL [Suspect]
     Active Substance: FLUOROURACIL
     Indication: Adenocarcinoma gastric
     Dosage: ADMINISTERED INTRAVENOUSLY ON DAYS 1-5 OF EACH 3-WEEK CYCLE
     Route: 042
  10. FLUOROURACIL [Suspect]
     Active Substance: FLUOROURACIL
     Indication: Gastrooesophageal cancer
  11. CISPLATIN [Suspect]
     Active Substance: CISPLATIN
     Indication: Adenocarcinoma gastric
     Route: 042
  12. CISPLATIN [Suspect]
     Active Substance: CISPLATIN
     Indication: Gastrooesophageal cancer

REACTIONS (42)
  - Hepatitis [Fatal]
  - Sepsis [Fatal]
  - Cerebral infarction [Fatal]
  - Pneumonitis [Fatal]
  - Myocarditis [Fatal]
  - Cholangitis [Fatal]
  - Pulmonary embolism [Fatal]
  - Diarrhoea [Unknown]
  - Nausea [Unknown]
  - Anaemia [Unknown]
  - Neutrophil count decreased [Unknown]
  - Decreased appetite [Unknown]
  - Platelet count decreased [Unknown]
  - Vomiting [Unknown]
  - Peripheral sensory neuropathy [Unknown]
  - Palmar-plantar erythrodysaesthesia syndrome [Unknown]
  - Fatigue [Unknown]
  - Aspartate aminotransferase increased [Unknown]
  - Neuropathy peripheral [Unknown]
  - Neutropenia [Unknown]
  - White blood cell count decreased [Unknown]
  - Alanine aminotransferase increased [Unknown]
  - Weight decreased [Unknown]
  - Thrombocytopenia [Unknown]
  - Asthenia [Unknown]
  - Blood bilirubin increased [Unknown]
  - Stomatitis [Unknown]
  - Infusion related reaction [Unknown]
  - Hypothyroidism [Unknown]
  - Colitis [Unknown]
  - Adrenal insufficiency [Unknown]
  - Guillain-Barre syndrome [Unknown]
  - Hypophysitis [Unknown]
  - Myositis [Unknown]
  - Nephritis [Unknown]
  - Pancreatitis [Unknown]
  - Skin reaction [Unknown]
  - Type 1 diabetes mellitus [Unknown]
  - Hyperthyroidism [Unknown]
  - Thyroiditis [Unknown]
  - Uveitis [Unknown]
  - Vasculitis [Unknown]
